FAERS Safety Report 12487097 (Version 1)
Quarter: 2016Q2

REPORT INFORMATION
  Report Type: Report from Study
  Country: US (occurrence: US)
  Receive Date: 20160622
  Receipt Date: 20160622
  Transmission Date: 20160815
  Serious: No
  Sender: FDA-Public Use
  Company Number: US-009507513-1606USA005915

PATIENT
  Age: 17 Year
  Sex: Female
  Weight: 63.75 kg

DRUGS (1)
  1. NEXPLANON [Suspect]
     Active Substance: ETONOGESTREL
     Dosage: UNK
     Route: 059
     Dates: start: 20130108

REACTIONS (2)
  - Product use issue [Unknown]
  - Contraceptive implant [Unknown]

NARRATIVE: CASE EVENT DATE: 20130108
